FAERS Safety Report 8232869 (Version 3)
Quarter: 2013Q1

REPORT INFORMATION
  Report Type: Spontaneous
  Country: US (occurrence: None)
  Receive Date: 20111028
  Receipt Date: 20130308
  Transmission Date: 20140127
  Serious: Yes (Hospitalization, Other)
  Sender: FDA-Public Use
  Company Number: ACO_27379_2011

PATIENT
  Age: 51 Year
  Sex: Female

DRUGS (5)
  1. AMPYRA [Suspect]
     Dosage: 10 MG, Q 12 HRS
     Dates: start: 201005
  2. XANAX [Concomitant]
  3. TYSABRI [Concomitant]
  4. PRISTIQ EXTENDED RELEASE [Concomitant]
  5. HYDROCODONE BITARTRATE [Concomitant]

REACTIONS (4)
  - PNEUMONIA [None]
  - HEADACHE [None]
  - PALPITATIONS [None]
  - BLOOD POTASSIUM DECREASED [None]
